FAERS Safety Report 8451921-4 (Version None)
Quarter: 2012Q2

REPORT INFORMATION
  Report Type: 
  Country: None (occurrence: None)
  Receive Date: 20120620
  Receipt Date: 20120417
  Transmission Date: 20120825
  Serious: No
  Sender: FDA-Public Use
  Company Number: US-VERTEX PHARMACEUTICALS INC.-AE-2012-004296

PATIENT
  Sex: Female
  Weight: 112.14 kg

DRUGS (9)
  1. RIBAVIRIN [Concomitant]
     Indication: HEPATITIS C
     Route: 048
     Dates: start: 20120310
  2. SYNTHROID [Concomitant]
     Indication: THYROID THERAPY
     Route: 048
  3. FLUTICASONE FUROATE [Concomitant]
     Indication: HYPERSENSITIVITY
  4. PEGASYS [Concomitant]
     Indication: HEPATITIS C
     Route: 058
     Dates: start: 20120310
  5. AMBIEN [Concomitant]
     Route: 048
  6. ASPIRIN [Concomitant]
     Indication: SUPPLEMENTATION THERAPY
     Route: 048
  7. METOPROLOL SUCCINATE [Concomitant]
     Indication: HYPERTENSION
     Route: 048
  8. INCIVEK [Suspect]
     Indication: HEPATITIS C
     Route: 048
     Dates: start: 20120310
  9. LISINOPRIL AND HYDROCHLOROTHIAZIDE [Concomitant]
     Indication: HYPERTENSION
     Route: 048

REACTIONS (6)
  - ANORECTAL DISCOMFORT [None]
  - PRURITUS [None]
  - HYPOACUSIS [None]
  - RECTAL HAEMORRHAGE [None]
  - DIARRHOEA [None]
  - NAUSEA [None]
